FAERS Safety Report 19386713 (Version 1)
Quarter: 2021Q2

REPORT INFORMATION
  Report Type: Spontaneous
  Country: US (occurrence: US)
  Receive Date: 20210607
  Receipt Date: 20210607
  Transmission Date: 20210717
  Serious: No
  Sender: FDA-Public Use
  Company Number: None

PATIENT
  Age: 67 Year
  Sex: Female

DRUGS (1)
  1. HUMIRA [Suspect]
     Active Substance: ADALIMUMAB
     Indication: HIDRADENITIS
     Dosage: INJECT 40MG SUBCUTANEOUSLY ONCE A WEEK IN THE ABDOMEN OR THIGH ROTATING INJECTION  SITES AS
     Route: 058
     Dates: start: 202002

REACTIONS (1)
  - Infection [None]
